FAERS Safety Report 24318367 (Version 1)
Quarter: 2024Q3

REPORT INFORMATION
  Report Type: Report from Study
  Country: US (occurrence: US)
  Receive Date: 20240913
  Receipt Date: 20240913
  Transmission Date: 20241017
  Serious: Yes (Other)
  Sender: BAYER
  Company Number: US-BAYER-2024A122473

PATIENT
  Age: 70 Year
  Sex: Male

DRUGS (2)
  1. STIVARGA [Suspect]
     Active Substance: REGORAFENIB MONOHYDRATE
     Dosage: UNK
     Dates: start: 20230404, end: 20240812
  2. VOLTAREN [Concomitant]
     Active Substance: DICLOFENAC SODIUM
     Dosage: UNK
     Dates: start: 20240826

REACTIONS (9)
  - Malignant neoplasm progression [Not Recovered/Not Resolved]
  - Deafness [None]
  - Hypoaesthesia [None]
  - Abdominal pain upper [None]
  - Fatigue [None]
  - Asthenia [None]
  - Diarrhoea [None]
  - Vomiting [None]
  - Dysphonia [None]
